FAERS Safety Report 11518113 (Version 1)
Quarter: 2015Q3

REPORT INFORMATION
  Report Type: Report from Study
  Country: CL (occurrence: CL)
  Receive Date: 20150917
  Receipt Date: 20150917
  Transmission Date: 20151125
  Serious: Yes (Other)
  Sender: FDA-Public Use
  Company Number: CL-TEVA-592019ISR

PATIENT
  Age: 22 Year
  Sex: Female

DRUGS (1)
  1. ASICOT [Suspect]
     Active Substance: QUETIAPINE
     Route: 048
     Dates: start: 20150906

REACTIONS (4)
  - Syncope [Recovered/Resolved]
  - Loss of consciousness [Recovered/Resolved]
  - Amnesia [Unknown]
  - Myoclonus [Recovered/Resolved]

NARRATIVE: CASE EVENT DATE: 20150906
